FAERS Safety Report 7146369-9 (Version None)
Quarter: 2010Q4

REPORT INFORMATION
  Report Type: 
  Country: None (occurrence: None)
  Receive Date: 20101208
  Receipt Date: 20100119
  Transmission Date: 20110411
  Serious: No
  Sender: FDA-Public Use
  Company Number: US-BRISTOL-MYERS SQUIBB COMPANY-14921837

PATIENT
  Sex: Female

DRUGS (2)
  1. PRAVASTATIN SODIUM [Suspect]
     Dosage: TABS
  2. LIPITOR [Suspect]

REACTIONS (2)
  - DRUG INEFFECTIVE [None]
  - PARATHYROID DISORDER [None]
